FAERS Safety Report 12489480 (Version 1)
Quarter: 2016Q2

REPORT INFORMATION
  Report Type: Spontaneous
  Country: US (occurrence: US)
  Receive Date: 20160622
  Receipt Date: 20160622
  Transmission Date: 20160815
  Serious: Yes (Other)
  Sender: FDA-Public Use
  Company Number: US-GLAXOSMITHKLINE-US2016087360

PATIENT
  Age: 80 Year
  Sex: Female

DRUGS (2)
  1. MINERAL ICE PAIN RELIEVING [Suspect]
     Active Substance: MENTHOL
     Indication: PAIN
     Dosage: UNK
     Route: 061
  2. MINERAL ICE PAIN RELIEVING [Suspect]
     Active Substance: MENTHOL
     Indication: INJURY

REACTIONS (3)
  - Meniscus injury [Recovered/Resolved]
  - Muscle spasms [Unknown]
  - Arthritis [Unknown]

NARRATIVE: CASE EVENT DATE: 2014
